FAERS Safety Report 8602493-2 (Version None)
Quarter: 2012Q3

REPORT INFORMATION
  Report Type: 
  Country: None (occurrence: None)
  Receive Date: 20120817
  Receipt Date: 19940309
  Transmission Date: 20120928
  Serious: Yes (Other)
  Sender: FDA-Public Use
  Company Number: US-ROCHE-1101274

PATIENT
  Sex: Male

DRUGS (10)
  1. HEPARIN LOCK-FLUSH [Concomitant]
  2. ACTIVASE [Suspect]
  3. NTG SL [Concomitant]
  4. ASPIRIN [Concomitant]
     Route: 048
  5. ASPIRIN [Concomitant]
     Route: 048
  6. RESTORIL [Concomitant]
     Route: 048
  7. TYLENOL [Concomitant]
     Route: 048
  8. INAPSIN [Concomitant]
     Dosage: 0.25 CC IVP
  9. ACTIVASE [Suspect]
     Indication: MYOCARDIAL INFARCTION
     Dosage: IVP (10+50+20+20 MG)
     Route: 042
  10. PEPCID [Concomitant]
     Route: 048

REACTIONS (2)
  - BREAST PAIN [None]
  - PAIN [None]
